FAERS Safety Report 5807211-9 (Version None)
Quarter: 2008Q3

REPORT INFORMATION
  Report Type: 
  Country: None (occurrence: None)
  Receive Date: 20080711
  Receipt Date: 20080704
  Transmission Date: 20090109
  Serious: Yes (Hospitalization)
  Sender: FDA-Public Use
  Company Number: B0528099A

PATIENT
  Age: 44 Year
  Sex: Male

DRUGS (3)
  1. ZOPHREN [Suspect]
     Indication: DRUG USE FOR UNKNOWN INDICATION
     Route: 048
     Dates: start: 20080220, end: 20080220
  2. SOLU-MEDROL [Suspect]
     Indication: PRIMARY PROGRESSIVE MULTIPLE SCLEROSIS
     Route: 042
     Dates: start: 20080222, end: 20080224
  3. ENDOXAN [Suspect]
     Indication: PRIMARY PROGRESSIVE MULTIPLE SCLEROSIS
     Route: 042
     Dates: start: 20080222, end: 20080224

REACTIONS (2)
  - ANGIOEDEMA [None]
  - PRURIGO [None]
